FAERS Safety Report 25771934 (Version 1)
Quarter: 2025Q3

REPORT INFORMATION
  Report Type: Spontaneous
  Country: US (occurrence: US)
  Receive Date: 20250908
  Receipt Date: 20250908
  Transmission Date: 20251020
  Serious: No
  Sender: JOHNSON AND JOHNSON
  Company Number: US-JNJFOC-20250901983

PATIENT
  Sex: Female

DRUGS (1)
  1. TREMFYA [Suspect]
     Active Substance: GUSELKUMAB
     Indication: Product used for unknown indication
     Route: 065
     Dates: start: 20250901

REACTIONS (5)
  - Adverse event [Unknown]
  - Heart rate increased [Unknown]
  - Ocular discomfort [Unknown]
  - Halo vision [Recovering/Resolving]
  - Product label issue [Unknown]
